FAERS Safety Report 13938517 (Version 2)
Quarter: 2017Q3

REPORT INFORMATION
  Report Type: Spontaneous
  Country: RU (occurrence: RU)
  Receive Date: 20170905
  Receipt Date: 20170920
  Transmission Date: 20171127
  Serious: Yes (Other)
  Sender: FDA-Public Use
  Company Number: RU-ASTRAZENECA-2017SE90070

PATIENT
  Age: 60 Year
  Sex: Female
  Weight: 96 kg

DRUGS (4)
  1. MANINIL [Concomitant]
     Active Substance: GLYBURIDE
     Indication: TYPE 2 DIABETES MELLITUS
     Dosage: 15.0MG UNKNOWN
     Route: 048
  2. FORXIGA [Suspect]
     Active Substance: DAPAGLIFLOZIN
     Indication: TYPE 2 DIABETES MELLITUS
     Route: 048
     Dates: start: 20170619
  3. ACTRAPID [Concomitant]
     Active Substance: INSULIN HUMAN
     Indication: TYPE 2 DIABETES MELLITUS
     Dosage: 0.8 UNITS/KG
     Route: 058
     Dates: start: 20170524, end: 20170628
  4. METFORMIN [Concomitant]
     Active Substance: METFORMIN HYDROCHLORIDE
     Indication: TYPE 2 DIABETES MELLITUS
     Dosage: 2000.0MG UNKNOWN
     Route: 048

REACTIONS (2)
  - Paronychia [Recovered/Resolved]
  - Finger amputation [Unknown]

NARRATIVE: CASE EVENT DATE: 20170828
